FAERS Safety Report 5693833-5 (Version None)
Quarter: 2008Q2

REPORT INFORMATION
  Report Type: 
  Country: None (occurrence: None)
  Receive Date: 20080403
  Receipt Date: 20080328
  Transmission Date: 20081010
  Serious: Yes (Hospitalization, Other)
  Sender: FDA-Public Use
  Company Number: SE-PFIZER INC-2008027480

PATIENT
  Sex: Female

DRUGS (2)
  1. ZOLOFT [Suspect]
     Dosage: DAILY DOSE:1GRAM-FREQ:ONE TIME
     Route: 048
     Dates: start: 20080327, end: 20080327
  2. ALCOHOL [Suspect]

REACTIONS (6)
  - CHILLS [None]
  - FORMICATION [None]
  - INTENTIONAL OVERDOSE [None]
  - MUSCLE TIGHTNESS [None]
  - POISONING [None]
  - SKIN BURNING SENSATION [None]
